FAERS Safety Report 5386087-0 (Version None)
Quarter: 2007Q3

REPORT INFORMATION
  Report Type: 
  Country: None (occurrence: None)
  Receive Date: 20070712
  Receipt Date: 20070704
  Transmission Date: 20080115
  Serious: Yes (Other)
  Sender: FDA-Public Use
  Company Number: FR-ABBOTT-07P-056-0373627-00

PATIENT
  Age: 63 Year
  Sex: Female

DRUGS (2)
  1. ZECLAR [Suspect]
     Indication: HELICOBACTER INFECTION
     Route: 048
  2. ANTIVITAMIN K ANTICOAGULANT [Interacting]
     Indication: DRUG USE FOR UNKNOWN INDICATION

REACTIONS (3)
  - DRUG INTERACTION [None]
  - HAEMORRHAGE [None]
  - PROTHROMBIN LEVEL DECREASED [None]
